FAERS Safety Report 7404158-1 (Version None)
Quarter: 2011Q1

REPORT INFORMATION
  Report Type: 
  Country: None (occurrence: None)
  Receive Date: 20110324
  Receipt Date: 20110315
  Transmission Date: 20110831
  Serious: Yes (Hospitalization)
  Sender: FDA-Public Use
  Company Number: M2011-011A

PATIENT
  Age: 37 Year
  Sex: Female

DRUGS (6)
  1. SINGULAIR [Concomitant]
  2. ZYRTEC [Concomitant]
  3. ALLERGENIC EXTRACT [Suspect]
     Indication: HYPERSENSITIVITY
     Dosage: 0.4 ML TWICE WEEKLY INJECTION
  4. ADAIR [Concomitant]
  5. ALBUTEROL INHALER [Concomitant]
  6. SYNTHROID [Concomitant]

REACTIONS (2)
  - SYNCOPE [None]
  - CHEST DISCOMFORT [None]
